FAERS Safety Report 5178090-0 (Version None)
Quarter: 2006Q4

REPORT INFORMATION
  Report Type: 
  Country: None (occurrence: None)
  Receive Date: 20061218
  Receipt Date: 20060731
  Transmission Date: 20070319
  Serious: No
  Sender: FDA-Public Use
  Company Number: US-AMGEN-KDL188477

PATIENT
  Sex: Female

DRUGS (3)
  1. ENBREL [Suspect]
     Indication: RHEUMATOID ARTHRITIS
     Route: 058
     Dates: start: 20000620
  2. METHOTREXATE [Concomitant]
     Dates: start: 19860101
  3. ARAVA [Concomitant]
     Dates: start: 20010101

REACTIONS (2)
  - MUSCULOSKELETAL STIFFNESS [None]
  - TOOTH ABSCESS [None]
